FAERS Safety Report 14749199 (Version 1)
Quarter: 2018Q2

REPORT INFORMATION
  Report Type: Report from Study
  Country: US (occurrence: US)
  Receive Date: 20180411
  Receipt Date: 20180411
  Transmission Date: 20180711
  Serious: No
  Sender: FDA-Public Use
  Company Number: US-AMGEN-USASP2018012954

PATIENT
  Age: 75 Year
  Sex: Female

DRUGS (1)
  1. PROLIA [Suspect]
     Active Substance: DENOSUMAB
     Indication: OSTEOPOROSIS POSTMENOPAUSAL
     Dosage: 60 MG, Q6MO
     Route: 065

REACTIONS (9)
  - Tooth extraction [Unknown]
  - Gait disturbance [Unknown]
  - Malaise [Unknown]
  - Back disorder [Unknown]
  - Gastrooesophageal reflux disease [Recovering/Resolving]
  - Pain in extremity [Unknown]
  - Diarrhoea [Unknown]
  - Bedridden [Unknown]
  - Arthralgia [Unknown]

NARRATIVE: CASE EVENT DATE: 2017
